FAERS Safety Report 4566927-5 (Version None)
Quarter: 2005Q1

REPORT INFORMATION
  Report Type: 
  Country: None (occurrence: None)
  Receive Date: 20050201
  Receipt Date: 20030409
  Transmission Date: 20050727
  Serious: Yes (Other)
  Sender: FDA-Public Use
  Company Number: US-BRISTOL-MYERS SQUIBB COMPANY-12244760

PATIENT
  Age: 36 Year
  Sex: Female

DRUGS (6)
  1. STADOL [Suspect]
     Indication: MIGRAINE
     Dosage: STARTED 1988 OR 1989, THEN AGAIN FROM 1995 TO FEB-2000
     Route: 045
     Dates: start: 19880101, end: 20000201
  2. PROPOXYPHENE [Concomitant]
  3. CARISOPRODOL [Concomitant]
  4. PROMETHAZINE [Concomitant]
  5. NEURONTIN [Concomitant]
  6. AMITRIPTYLINE [Concomitant]

REACTIONS (2)
  - DEPENDENCE [None]
  - DRUG WITHDRAWAL SYNDROME [None]
